FAERS Safety Report 19389276 (Version 1)
Quarter: 2021Q2

REPORT INFORMATION
  Report Type: Spontaneous
  Country: US (occurrence: US)
  Receive Date: 20210607
  Receipt Date: 20210607
  Transmission Date: 20210717
  Serious: No
  Sender: FDA-Public Use
  Company Number: US-GLAXOSMITHKLINE-USCH2021034588

PATIENT
  Age: 34 Year
  Sex: Male

DRUGS (1)
  1. ALLI [Suspect]
     Active Substance: ORLISTAT
     Indication: WEIGHT INCREASED
     Dosage: UNK
     Dates: start: 20210501, end: 20210602

REACTIONS (2)
  - Drug ineffective [Unknown]
  - Product complaint [Unknown]
